FAERS Safety Report 9914304 (Version 2)
Quarter: 2014Q1

REPORT INFORMATION
  Report Type: Report from Study
  Country: CA (occurrence: CA)
  Receive Date: 20140220
  Receipt Date: 20140313
  Transmission Date: 20141002
  Serious: Yes (Other)
  Sender: FDA-Public Use
  Company Number: CA-GILEAD-2014-0094669

PATIENT
  Age: 52 Year
  Sex: Female
  Weight: 45.35 kg

DRUGS (1)
  1. TENOFOVIR DISOPROXIL FUMARATE [Suspect]
     Indication: HEPATITIS B
     Dosage: 300 MG, UNK
     Route: 048
     Dates: start: 20120314

REACTIONS (3)
  - Oesophageal carcinoma [Not Recovered/Not Resolved]
  - Gastritis [Not Recovered/Not Resolved]
  - Odynophagia [Not Recovered/Not Resolved]
